FAERS Safety Report 24564662 (Version 2)
Quarter: 2024Q4

REPORT INFORMATION
  Report Type: Report from Study
  Country: US (occurrence: US)
  Receive Date: 20241030
  Receipt Date: 20241125
  Transmission Date: 20250115
  Serious: Yes (Hospitalization, Other)
  Sender: TAKEDA
  Company Number: US-TAKEDA-2024TUS107240

PATIENT
  Age: 75 Year
  Sex: Female

DRUGS (6)
  1. TEDUGLUTIDE [Suspect]
     Active Substance: TEDUGLUTIDE
     Indication: Short-bowel syndrome
     Dosage: 2.5 MILLIGRAM, QD
     Dates: start: 20140813
  2. TEDUGLUTIDE [Suspect]
     Active Substance: TEDUGLUTIDE
  3. TEDUGLUTIDE [Suspect]
     Active Substance: TEDUGLUTIDE
  4. TEDUGLUTIDE [Suspect]
     Active Substance: TEDUGLUTIDE
  5. DOMPERIDONE [Concomitant]
     Active Substance: DOMPERIDONE
     Indication: Impaired gastric emptying
     Dosage: 10 MILLIGRAM, BID
     Dates: start: 20230516
  6. PANTOPRAZOLE [Concomitant]
     Active Substance: PANTOPRAZOLE
     Indication: Gastrooesophageal reflux disease
     Dosage: 40 MILLIGRAM, QD
     Dates: start: 20240529, end: 20240530

REACTIONS (4)
  - Chest pain [Recovered/Resolved]
  - Rectal haemorrhage [Recovered/Resolved]
  - Copper deficiency [Not Recovered/Not Resolved]
  - Vitamin A deficiency [Not Recovered/Not Resolved]

NARRATIVE: CASE EVENT DATE: 20240130
